FAERS Safety Report 4704336-6 (Version None)
Quarter: 2005Q2

REPORT INFORMATION
  Report Type: 
  Country: None (occurrence: None)
  Receive Date: 20050629
  Receipt Date: 20050615
  Transmission Date: 20051028
  Serious: Yes (Hospitalization, Other)
  Sender: FDA-Public Use
  Company Number: 214651

PATIENT
  Age: 59 Year
  Sex: Female
  Weight: 102 kg

DRUGS (11)
  1. RAPTIVA [Suspect]
     Indication: PSORIASIS
     Dosage: 125 MG, 1/ WEEK, SUBCUTANEOUS
     Route: 058
     Dates: start: 20050301, end: 20050403
  2. PROZAC [Concomitant]
  3. ZESTRIL [Concomitant]
  4. LISINOPRIL [Concomitant]
  5. SINGULAIR [Concomitant]
  6. ALBUTEROL (ALBUTEROL, ALBUTEROL SULFATE) [Concomitant]
  7. ACIPHEX [Concomitant]
  8. AUGMENTIN '250' [Concomitant]
  9. NAPROSYN [Concomitant]
  10. TORADOL [Concomitant]
  11. GLUCOPHAGE [Concomitant]

REACTIONS (10)
  - ACTIVATED PARTIAL THROMBOPLASTIN TIME PROLONGED [None]
  - ARTHRALGIA [None]
  - BACTERIA URINE [None]
  - BLOOD URINE PRESENT [None]
  - CONTUSION [None]
  - DIARRHOEA [None]
  - DIVERTICULUM [None]
  - ECCHYMOSIS [None]
  - FACTOR VIII INHIBITION [None]
  - PERICARDIAL EFFUSION [None]
